FAERS Safety Report 13155913 (Version 1)
Quarter: 2017Q1

REPORT INFORMATION
  Report Type: Spontaneous
  Country: US (occurrence: US)
  Receive Date: 20170126
  Receipt Date: 20170126
  Transmission Date: 20170428
  Serious: No
  Sender: FDA-Public Use
  Company Number: US-ROCHE-782454

PATIENT
  Age: 72 Year
  Sex: Female
  Weight: 73.6 kg

DRUGS (4)
  1. TERAZOSIN HCL [Concomitant]
     Active Substance: TERAZOSIN HYDROCHLORIDE
     Route: 065
  2. DIAZEPAM. [Suspect]
     Active Substance: DIAZEPAM
     Indication: ANXIETY
     Dosage: FREQUENCY: Q 4-6 HOURS PRM
     Route: 048
  3. LOTREL [Concomitant]
     Active Substance: AMLODIPINE BESYLATE\BENAZEPRIL HYDROCHLORIDE
     Dosage: DRUG NAME: LOTREL 10/20
     Route: 065
  4. TOPROL XL [Concomitant]
     Active Substance: METOPROLOL SUCCINATE
     Route: 065

REACTIONS (4)
  - Somnolence [Unknown]
  - Dry mouth [Unknown]
  - Dyspnoea [Unknown]
  - Feeling jittery [Unknown]

NARRATIVE: CASE EVENT DATE: 20110609
